FAERS Safety Report 23584007 (Version 1)
Quarter: 2024Q1

REPORT INFORMATION
  Report Type: Spontaneous
  Country: IT (occurrence: IT)
  Receive Date: 20240301
  Receipt Date: 20240301
  Transmission Date: 20240409
  Serious: Yes (Death, Other)
  Sender: FDA-Public Use
  Company Number: None

PATIENT
  Age: 72 Year
  Sex: Male
  Weight: 76 kg

DRUGS (9)
  1. CYCLOPHOSPHAMIDE [Suspect]
     Active Substance: CYCLOPHOSPHAMIDE
     Indication: Prophylaxis against transplant rejection
     Dosage: 80 MG/KG, DRUG ADMINISTERED FOR THERAPEUTIC USE AT A DOSE OF 80 MG/KG FOR THE PREVENTION OF ACUTE GV
     Route: 042
     Dates: start: 20240114, end: 20240115
  2. TAMSULOSIN [Concomitant]
     Active Substance: TAMSULOSIN
     Dosage: 0.4 MG, TAMSULOSIN 0.4 MG TBLS1 TBL AT 20 HOURS
     Route: 048
  3. THIOTEPA [Concomitant]
     Active Substance: THIOTEPA
     Indication: Prophylaxis against transplant rejection
     Dosage: 375 MG, CONDITIONING REGIMEN THERAPY FROM 05/01/2024 TO 08/01/2024: THIOTEPA (TOTAL DOSE 375 MG DAYS
     Route: 042
     Dates: start: 20240105, end: 20240107
  4. BISOPROLOL [Concomitant]
     Active Substance: BISOPROLOL\BISOPROLOL FUMARATE
     Dosage: 1.25 MG, BISOPROLOL 1.25 MG 1 TBL AT 8 HRS
     Route: 048
  5. AMOXICILLIN\CLAVULANIC ACID [Concomitant]
     Active Substance: AMOXICILLIN\CLAVULANIC ACID
     Dosage: 1000 MG, 1000 MG TBLS 1 TBL AT 8, 16, AND 22 HOURS
     Route: 048
  6. LAMIVUDINE [Concomitant]
     Active Substance: LAMIVUDINE
     Dosage: 100 MG, LAMIVUDINE 100 MG TBLS, 1 TBL AT 18 HOURS
     Route: 048
  7. TREOSULFAN [Concomitant]
     Active Substance: TREOSULFAN
     Indication: Prophylaxis against transplant rejection
     Dosage: 19000 MG, CONDITIONING REGIMEN THERAPY FROM 05/01/2024 TO 08/01/2024: TREOSULFAN (TOTAL DOSE 19000MG
     Route: 042
     Dates: start: 20240105, end: 20240107
  8. FLUDARABINE [Concomitant]
     Active Substance: FLUDARABINE PHOSPHATE
     Indication: Prophylaxis against transplant rejection
     Dosage: UNK,CONDITIONING REGIMEN THERAPY FROM 05/01/2024 TO 08/01/2024: FLUDARABINE (TOTAL DOSE 95 MG DAY 4)
     Route: 042
     Dates: start: 20240108, end: 20240108
  9. ITRACONAZOLE [Concomitant]
     Active Substance: ITRACONAZOLE
     Dosage: 100 MG, 100 MG TBLS, 1 TBL AT 8 HOURS
     Route: 048

REACTIONS (1)
  - Cardiogenic shock [Fatal]

NARRATIVE: CASE EVENT DATE: 20240123
